FAERS Safety Report 7971093-X (Version None)
Quarter: 2011Q4

REPORT INFORMATION
  Report Type: 
  Country: None (occurrence: None)
  Receive Date: 20111212
  Receipt Date: 20111212
  Transmission Date: 20120403
  Serious: Yes (Disabling)
  Sender: FDA-Public Use
  Company Number: None

PATIENT
  Age: 59 Year
  Sex: Female
  Weight: 58.967 kg

DRUGS (1)
  1. LEVOFLOXACIN [Suspect]
     Indication: VULVOVAGINITIS
     Dosage: 750MG TABLETS
     Route: 048
     Dates: start: 20111107, end: 20111111

REACTIONS (5)
  - SWELLING [None]
  - ACTIVITIES OF DAILY LIVING IMPAIRED [None]
  - IMPAIRED DRIVING ABILITY [None]
  - TENDON DISORDER [None]
  - ABASIA [None]
